FAERS Safety Report 7875409-4 (Version None)
Quarter: 2011Q4

REPORT INFORMATION
  Report Type: 
  Country: None (occurrence: None)
  Receive Date: 20111031
  Receipt Date: 20111019
  Transmission Date: 20120403
  Serious: Yes (Death, Hospitalization)
  Sender: FDA-Public Use
  Company Number: PHHY2011JP78740

PATIENT
  Age: 95 Year
  Sex: Male
  Weight: 52 kg

DRUGS (5)
  1. VOLTAREN-XR [Suspect]
     Indication: PAIN
     Dosage: 37.5 MG, DAILY
     Route: 048
  2. SENNOSIDE [Concomitant]
     Dosage: UNK UKN, UNK
  3. VALSARTAN [Concomitant]
     Dosage: UNK UKN, UNK
  4. MAGNESIUM OXIDE [Concomitant]
     Dosage: UNK UKN, UNK
  5. OXYCODONE HCL [Concomitant]
     Dosage: 5 MG, UNK
     Route: 048

REACTIONS (39)
  - HEPATIC STEATOSIS [None]
  - PROSTATE CANCER [None]
  - BLOOD UREA INCREASED [None]
  - URINE OUTPUT DECREASED [None]
  - CARDIAC ANEURYSM [None]
  - HYPOGLYCAEMIA [None]
  - HAEMATEMESIS [None]
  - GASTROINTESTINAL ULCER [None]
  - RENAL IMPAIRMENT [None]
  - GASTRIC MUCOSAL LESION [None]
  - RESPIRATORY DISORDER [None]
  - HYPOTENSION [None]
  - CHRONIC MYELOMONOCYTIC LEUKAEMIA [None]
  - TUMOUR LYSIS SYNDROME [None]
  - BRONCHOPNEUMONIA [None]
  - HYPERURICAEMIA [None]
  - RESTLESSNESS [None]
  - RENAL ARTERIOSCLEROSIS [None]
  - WHITE BLOOD CELL COUNT INCREASED [None]
  - HYPONATRAEMIA [None]
  - ABSCESS BACTERIAL [None]
  - LUNG INFILTRATION [None]
  - CONDITION AGGRAVATED [None]
  - PYREXIA [None]
  - COLON CANCER [None]
  - ADENOCARCINOMA [None]
  - BENIGN PROSTATIC HYPERPLASIA [None]
  - ADRENAL INSUFFICIENCY [None]
  - GASTROINTESTINAL HAEMORRHAGE [None]
  - LYMPHADENOPATHY [None]
  - HAEMANGIOMA OF LIVER [None]
  - MYOCARDIAL INFARCTION [None]
  - ERYTHROPHAGOCYTOSIS [None]
  - VOMITING [None]
  - HYPERKALAEMIA [None]
  - SPERMATOGENESIS ABNORMAL [None]
  - EMPHYSEMA [None]
  - VENTRICULAR HYPERTROPHY [None]
  - ARTERIOSCLEROSIS CORONARY ARTERY [None]
